FAERS Safety Report 7335631-2 (Version None)
Quarter: 2011Q1

REPORT INFORMATION
  Report Type: 
  Country: None (occurrence: None)
  Receive Date: 20110307
  Receipt Date: 20101007
  Transmission Date: 20110831
  Serious: Yes (Hospitalization)
  Sender: FDA-Public Use
  Company Number: A0886354A

PATIENT
  Age: 61 Year
  Sex: Male

DRUGS (1)
  1. ROSIGLITAZONE MALEATE [Suspect]
     Dosage: 8MG TWICE PER DAY
     Route: 048
     Dates: start: 20020301, end: 20060501

REACTIONS (2)
  - VASCULAR GRAFT [None]
  - MYOCARDIAL INFARCTION [None]
